FAERS Safety Report 7301573-1 (Version None)
Quarter: 2011Q1

REPORT INFORMATION
  Report Type: 
  Country: None (occurrence: None)
  Receive Date: 20110218
  Receipt Date: 20110216
  Transmission Date: 20110831
  Serious: Yes (Death)
  Sender: FDA-Public Use
  Company Number: US-SANOFI-AVENTIS-2011SA009934

PATIENT
  Age: 62 Year
  Sex: Male

DRUGS (5)
  1. COUMADIN [Concomitant]
  2. JEVTANA KIT [Suspect]
     Route: 041
     Dates: start: 20101018, end: 20101018
  3. JEVTANA KIT [Suspect]
     Indication: PROSTATE CANCER
     Route: 041
     Dates: start: 20100908, end: 20100908
  4. JEVTANA KIT [Suspect]
     Route: 041
     Dates: start: 20101108, end: 20101108
  5. JEVTANA KIT [Suspect]
     Route: 041
     Dates: start: 20101130, end: 20101130

REACTIONS (1)
  - DEATH [None]
